FAERS Safety Report 25755049 (Version 2)
Quarter: 2025Q3

REPORT INFORMATION
  Report Type: Spontaneous
  Country: US (occurrence: US)
  Receive Date: 20250903
  Receipt Date: 20250910
  Transmission Date: 20251020
  Serious: No
  Sender: ABBVIE
  Company Number: US-ABBVIE-6440452

PATIENT
  Sex: Female

DRUGS (1)
  1. SYNTHROID [Suspect]
     Active Substance: LEVOTHYROXINE SODIUM
     Indication: Product used for unknown indication
     Route: 048
     Dates: start: 2020

REACTIONS (7)
  - Chills [Unknown]
  - Influenza like illness [Unknown]
  - Body temperature fluctuation [Unknown]
  - Headache [Unknown]
  - Pain [Unknown]
  - Lethargy [Unknown]
  - Sneezing [Unknown]
